FAERS Safety Report 7325838-2 (Version None)
Quarter: 2011Q1

REPORT INFORMATION
  Report Type: 
  Country: None (occurrence: None)
  Receive Date: 20110302
  Receipt Date: 20110224
  Transmission Date: 20110831
  Serious: Yes (Other)
  Sender: FDA-Public Use
  Company Number: US-GENZYME-FLUD-1000751

PATIENT

DRUGS (2)
  1. FLUDARA [Suspect]
     Indication: CHRONIC LYMPHOCYTIC LEUKAEMIA
     Dosage: UNK
     Route: 065
  2. CYCLOPHOSPHAMIDE [Suspect]
     Indication: CHRONIC LYMPHOCYTIC LEUKAEMIA
     Dosage: UNK
     Route: 065

REACTIONS (7)
  - INFECTION [None]
  - CYTOKINE RELEASE SYNDROME [None]
  - LEUKOPENIA [None]
  - THROMBOCYTOPENIA [None]
  - NEUTROPENIA [None]
  - TUMOUR LYSIS SYNDROME [None]
  - ANAEMIA [None]
